FAERS Safety Report 7225801-6 (Version None)
Quarter: 2011Q1

REPORT INFORMATION
  Report Type: 
  Country: None (occurrence: None)
  Receive Date: 20110110
  Receipt Date: 20110110
  Transmission Date: 20110831
  Serious: Yes (Other)
  Sender: FDA-Public Use
  Company Number: None

PATIENT
  Age: 50 Year
  Sex: Female
  Weight: 75.7507 kg

DRUGS (1)
  1. IRON CAPS 18MG ISI BRANDS INC. [Suspect]
     Indication: GASTRIC BYPASS
     Dosage: 18 MG DAILY PO
     Route: 048
     Dates: start: 20101224, end: 20110103

REACTIONS (1)
  - RASH GENERALISED [None]
